FAERS Safety Report 4645087-6 (Version None)
Quarter: 2005Q2

REPORT INFORMATION
  Report Type: 
  Country: None (occurrence: None)
  Receive Date: 20050422
  Receipt Date: 20050419
  Transmission Date: 20051028
  Serious: Yes (Hospitalization)
  Sender: FDA-Public Use
  Company Number: HQ8148310DEC1999

PATIENT
  Age: 49 Year
  Sex: Female

DRUGS (8)
  1. EFFEXOR XR [Suspect]
     Indication: RHEUMATOID ARTHRITIS
     Dosage: 300 MG DAILY TITRATED TO OFF, ORAL
     Route: 048
  2. ENBREL [Suspect]
     Indication: RHEUMATOID ARTHRITIS
     Dosage: 25 MG 2X PER 1 WK, SUBCUTANEOUS
     Route: 058
     Dates: start: 19990701
  3. NORTRIPTYLINE HCL [Suspect]
  4. METHOTREXTE (METHOTREXATE) [Concomitant]
  5. ZOCOR [Concomitant]
  6. PREMARIN [Concomitant]
  7. ZANTAC [Concomitant]
  8. LEUCOVORIN CALCIUM [Concomitant]

REACTIONS (6)
  - DRUG INTERACTION [None]
  - HEADACHE [None]
  - HYPERTENSION [None]
  - MANIA [None]
  - PSYCHOMOTOR HYPERACTIVITY [None]
  - PYREXIA [None]
